FAERS Safety Report 13287534 (Version 1)
Quarter: 2017Q1

REPORT INFORMATION
  Report Type: Spontaneous
  Country: CA (occurrence: CA)
  Receive Date: 20170302
  Receipt Date: 20170302
  Transmission Date: 20170428
  Serious: Yes (Hospitalization)
  Sender: FDA-Public Use
  Company Number: CA-IPCA LABORATORIES LIMITED-IPC201702-000165

PATIENT
  Age: 58 Year
  Sex: Male

DRUGS (6)
  1. SERTRALINE [Concomitant]
     Active Substance: SERTRALINE HYDROCHLORIDE
  2. ALPRAZOLAM. [Concomitant]
     Active Substance: ALPRAZOLAM
  3. ESCITALOPRAM [Concomitant]
     Active Substance: ESCITALOPRAM OXALATE
  4. TRAMADOL. [Suspect]
     Active Substance: TRAMADOL
  5. OXAZEPAM. [Concomitant]
     Active Substance: OXAZEPAM
  6. QUETIAPINE. [Concomitant]
     Active Substance: QUETIAPINE

REACTIONS (1)
  - Mania [Unknown]
